FAERS Safety Report 6291035-5 (Version None)
Quarter: 2009Q3

REPORT INFORMATION
  Report Type: 
  Country: None (occurrence: None)
  Receive Date: 20090730
  Receipt Date: 20070625
  Transmission Date: 20100115
  Serious: Yes (Other)
  Sender: FDA-Public Use
  Company Number: US-ASTRAZENECA-2006UW12043

PATIENT
  Age: 16256 Day
  Sex: Male
  Weight: 81.6 kg

DRUGS (19)
  1. SEROQUEL [Suspect]
     Indication: DEPRESSION
     Dosage: 100-400 MG
     Route: 048
     Dates: start: 19960101
  2. SEROQUEL [Suspect]
     Indication: MOOD SWINGS
     Dosage: 100-400 MG
     Route: 048
     Dates: start: 19960101
  3. SEROQUEL [Suspect]
     Indication: ILLUSION
     Dosage: 100-400 MG
     Route: 048
     Dates: start: 19960101
  4. SEROQUEL [Suspect]
     Indication: NIGHTMARE
     Dosage: 100-400 MG
     Route: 048
     Dates: start: 19960101
  5. SEROQUEL [Suspect]
     Indication: PSYCHOTIC DISORDER
     Dosage: 100-400 MG
     Route: 048
     Dates: start: 19960101
  6. ZYPREXA [Suspect]
  7. DEPAKOTE [Concomitant]
     Indication: AFFECTIVE DISORDER
     Dosage: 250-750 MG
     Dates: start: 20000510, end: 20040506
  8. SINEQUAN [Concomitant]
     Dates: start: 19980729
  9. PROLIXIN [Concomitant]
  10. ELAVIL [Concomitant]
     Dates: start: 20000510
  11. TRAZODONE HCL [Concomitant]
     Dates: start: 20000510
  12. VISTARIL [Concomitant]
     Dates: start: 20000510
  13. PAXIL [Concomitant]
     Dates: start: 20000510
  14. KLONOPIN [Concomitant]
     Dosage: 0.5-1 MG
     Dates: start: 20040506
  15. LEXAPRO [Concomitant]
     Dates: start: 20040607
  16. GEODON [Concomitant]
     Dosage: 40 MG, FLUCTUATING (Q.H.S-B.I.D)
     Route: 048
     Dates: start: 20040607, end: 20050414
  17. GLUCOTROL [Concomitant]
     Indication: DIABETES MELLITUS
     Route: 048
     Dates: start: 20020101, end: 20050414
  18. ATIVAN [Concomitant]
     Indication: ANXIETY
     Route: 048
     Dates: start: 20050414
  19. EFFEXOR XR [Concomitant]
     Dosage: 75-150 MG
     Route: 048
     Dates: start: 20050414

REACTIONS (4)
  - DIABETES MELLITUS [None]
  - DIABETIC NEUROPATHY [None]
  - PANCREATITIS [None]
  - TYPE 2 DIABETES MELLITUS [None]
